FAERS Safety Report 20777177 (Version 1)
Quarter: 2022Q2

REPORT INFORMATION
  Report Type: Report from Study
  Country: IT (occurrence: IT)
  Receive Date: 20220503
  Receipt Date: 20220503
  Transmission Date: 20220721
  Serious: Yes (Other)
  Sender: FDA-Public Use
  Company Number: IT-ABBVIE-22K-083-4377028-00

PATIENT
  Age: 74 Year
  Sex: Male

DRUGS (2)
  1. CARBIDOPA\LEVODOPA [Suspect]
     Active Substance: CARBIDOPA\LEVODOPA
     Indication: Parkinson^s disease
     Dosage: TOTAL DAILY DOSE: 1700 MG; PUMP SETTING: MD: 5+3, CR: 5 (14H), ED: 5
     Route: 050
     Dates: start: 20190917
  2. CARBIDOPA\LEVODOPA [Suspect]
     Active Substance: CARBIDOPA\LEVODOPA

REACTIONS (2)
  - Respiratory arrest [Unknown]
  - Off label use [Unknown]

NARRATIVE: CASE EVENT DATE: 20220201
